FAERS Safety Report 18507549 (Version 1)
Quarter: 2020Q4

REPORT INFORMATION
  Report Type: Spontaneous
  Country: US (occurrence: US)
  Receive Date: 20201116
  Receipt Date: 20201116
  Transmission Date: 20210114
  Serious: Yes (Other)
  Sender: FDA-Public Use
  Company Number: US-NANJING KING-FRIEND BIOCHEMICAL PHARMACEUTICAL CO. LTD.-2020NKF00057

PATIENT
  Age: 52 Year
  Sex: Female

DRUGS (8)
  1. AMIODARONE [Suspect]
     Active Substance: AMIODARONE
     Dosage: 300 MG IV BOLUS (TWO 150 MG BOLUSES)
     Route: 042
  2. HEPARIN SODIUM. [Suspect]
     Active Substance: HEPARIN SODIUM
     Indication: THROMBOSIS PROPHYLAXIS
     Dosage: 3100 U, 10 DAYS BEFORE SURGERY
     Route: 065
  3. HEPARIN SODIUM. [Suspect]
     Active Substance: HEPARIN SODIUM
     Dosage: 42000 U, WHILE ON CARDIOPULMONARY BYPASS
     Route: 065
  4. AMIODARONE [Suspect]
     Active Substance: AMIODARONE
     Dosage: 150 MG, ONCE
     Route: 042
  5. HEPARIN SODIUM. [Suspect]
     Active Substance: HEPARIN SODIUM
     Dosage: 5000 U, 2X/DAY. STARTING POD 2
     Route: 058
  6. HEPARIN SODIUM. [Suspect]
     Active Substance: HEPARIN SODIUM
     Dosage: 5000 U, 2X/DAY, RESTARTED
     Route: 058
  7. AMIODARONE [Suspect]
     Active Substance: AMIODARONE
     Indication: PROPHYLAXIS
     Dosage: 200 MG, 2X/DAY
     Route: 048
  8. AMIODARONE [Suspect]
     Active Substance: AMIODARONE
     Dosage: 400 MG, 2X/DAY
     Route: 048

REACTIONS (1)
  - Hepatotoxicity [Recovering/Resolving]
